FAERS Safety Report 4273126-3 (Version None)
Quarter: 2004Q1

REPORT INFORMATION
  Report Type: 
  Country: None (occurrence: None)
  Receive Date: 20040116
  Receipt Date: 20040115
  Transmission Date: 20041129
  Serious: Yes (Hospitalization)
  Sender: FDA-Public Use
  Company Number: US-GLAXOSMITHKLINE-A0493479A

PATIENT
  Age: 61 Year
  Sex: Female

DRUGS (5)
  1. AVANDIA [Suspect]
     Dosage: 8MG PER DAY
     Route: 048
     Dates: start: 20030501
  2. HUMULIN N [Concomitant]
  3. NAPROXEN [Concomitant]
  4. GLUCOPHAGE [Concomitant]
  5. GLUCOTROL [Concomitant]

REACTIONS (6)
  - DIABETIC COMA [None]
  - FATIGUE [None]
  - KETONURIA [None]
  - OEDEMA [None]
  - THIRST [None]
  - WEIGHT INCREASED [None]
